FAERS Safety Report 21269380 (Version 1)
Quarter: 2022Q3

REPORT INFORMATION
  Report Type: Spontaneous
  Country: US (occurrence: None)
  Receive Date: 20220829
  Receipt Date: 20220829
  Transmission Date: 20221027
  Serious: No
  Sender: FDA-Public Use
  Company Number: None

PATIENT
  Sex: Female

DRUGS (1)
  1. BENLYSTA [Suspect]
     Active Substance: BELIMUMAB
     Dosage: 200MG OTHER   SUBCUTANEOUS
     Route: 058
     Dates: start: 202204

REACTIONS (7)
  - Product dose omission in error [None]
  - Product distribution issue [None]
  - Treatment delayed [None]
  - Joint stiffness [None]
  - Arthralgia [None]
  - Arthralgia [None]
  - Joint stiffness [None]
